FAERS Safety Report 21156835 (Version 1)
Quarter: 2022Q3

REPORT INFORMATION
  Report Type: Spontaneous
  Country: US (occurrence: None)
  Receive Date: 20220730
  Receipt Date: 20220730
  Transmission Date: 20221026
  Serious: No
  Sender: FDA-Public Use
  Company Number: None

PATIENT
  Age: 54 Year
  Sex: Female

DRUGS (1)
  1. BANANA BOAT (AVOBENZONE\HOMOSALATE\OCTOCRYLENE) [Suspect]
     Active Substance: AVOBENZONE\HOMOSALATE\OCTOCRYLENE

REACTIONS (1)
  - Suspected product quality issue [None]
